FAERS Safety Report 23268248 (Version 1)
Quarter: 2023Q4

REPORT INFORMATION
  Report Type: Spontaneous
  Country: US (occurrence: None)
  Receive Date: 20231206
  Receipt Date: 20231206
  Transmission Date: 20240110
  Serious: No
  Sender: FDA-Public Use
  Company Number: None

PATIENT
  Age: 33 Year
  Sex: Female

DRUGS (1)
  1. ADBRY [Suspect]
     Active Substance: TRALOKINUMAB-LDRM
     Indication: Dermatitis allergic
     Dosage: OTHER QUANTITY : 600MG (4 SYRINGES);?FREQUENCY : AS DIRECTED;?
     Route: 058
     Dates: start: 202311

REACTIONS (1)
  - Illness [None]
